FAERS Safety Report 15587998 (Version 3)
Quarter: 2019Q1

REPORT INFORMATION
  Report Type: Report from Study
  Country: US (occurrence: US)
  Receive Date: 20181105
  Receipt Date: 20190301
  Transmission Date: 20190417
  Serious: Yes (Hospitalization)
  Sender: FDA-Public Use
  Company Number: US-ACTELION-A-US2018-181160

PATIENT
  Age: 77 Year
  Sex: Male

DRUGS (1)
  1. TRACLEER [Suspect]
     Active Substance: BOSENTAN
     Indication: PULMONARY HYPERTENSION
     Dosage: 62.5 MG, BID
     Route: 048

REACTIONS (8)
  - Vascular procedure complication [Recovering/Resolving]
  - Liver function test increased [Unknown]
  - Dyspnoea [Unknown]
  - Gingival disorder [Unknown]
  - Loss of personal independence in daily activities [Unknown]
  - Haematoma [Unknown]
  - Iron deficiency anaemia [Unknown]
  - Hernia repair [Recovering/Resolving]

NARRATIVE: CASE EVENT DATE: 20181023
